FAERS Safety Report 9591713 (Version 2)
Quarter: 2013Q4

REPORT INFORMATION
  Report Type: Spontaneous
  Country: US (occurrence: US)
  Receive Date: 20131004
  Receipt Date: 20131004
  Transmission Date: 20140711
  Serious: No
  Sender: FDA-Public Use
  Company Number: US-AMGEN-USASP2012076767

PATIENT
  Age: 46 Year
  Sex: Female
  Weight: 76.64 kg

DRUGS (16)
  1. ENBREL [Suspect]
     Indication: RHEUMATOID ARTHRITIS
     Dosage: 50 MG, QWK
     Route: 058
     Dates: start: 20050101
  2. METHOTREXATE [Concomitant]
     Dosage: 20 MG, QWK
  3. OMEPRAZOLE [Concomitant]
     Dosage: 20 MG, QD
  4. ATENOLOL [Concomitant]
     Dosage: 100 MG, QD
  5. SALSALATE [Concomitant]
     Dosage: 750 MG, BID
  6. THERAPEUTIC-M [Concomitant]
     Dosage: 1 TABLET QD
  7. CALCIUM CARBONATE AND VITAMIN D [Concomitant]
     Dosage: BID
  8. PREMPRO [Concomitant]
     Dosage: UNK UNK, QD
  9. AMBIEN [Concomitant]
     Dosage: 5 MG HS
  10. BI EST [Concomitant]
     Dosage: 1 MG, UNK
  11. PROGESTERONE [Concomitant]
     Dosage: 100 MG, UNK
  12. TESTOSTERON                        /00103101/ [Concomitant]
     Dosage: 2 G, UNK
  13. ORENCIA [Concomitant]
     Dosage: UNK
     Route: 042
     Dates: start: 20120706
  14. PREDNISONE [Concomitant]
     Dosage: 10 MG, QD
  15. MULTIVITAMINS, PLAIN [Concomitant]
     Dosage: UNK UNK, QD
     Route: 048
  16. OESTROGEN [Concomitant]
     Dosage: UNK

REACTIONS (13)
  - Neuropathy peripheral [Recovering/Resolving]
  - Hepatic enzyme increased [Not Recovered/Not Resolved]
  - Vision blurred [Recovering/Resolving]
  - Discomfort [Unknown]
  - Food allergy [Unknown]
  - Fatigue [Unknown]
  - Malaise [Unknown]
  - Synovial disorder [Unknown]
  - Hand deformity [Not Recovered/Not Resolved]
  - Pain [Unknown]
  - Arthralgia [Recovering/Resolving]
  - Myalgia [Unknown]
  - Fear [Unknown]
